FAERS Safety Report 17340434 (Version 1)
Quarter: 2020Q1

REPORT INFORMATION
  Report Type: Spontaneous
  Country: US (occurrence: US)
  Receive Date: 20200129
  Receipt Date: 20200129
  Transmission Date: 20200409
  Serious: No
  Sender: FDA-Public Use
  Company Number: US-ALLERGAN-1920295US

PATIENT
  Age: 54 Year
  Sex: Female

DRUGS (3)
  1. BOTOX [Suspect]
     Active Substance: ONABOTULINUMTOXINA
     Indication: SKIN WRINKLING
     Dosage: UNK, SINGLE
     Dates: start: 20190509, end: 20190509
  2. JUVEDERM VOLLURE [Concomitant]
     Indication: SKIN WRINKLING
     Dosage: 2 CC
     Route: 065
     Dates: start: 20190509, end: 20190509
  3. JUVEDERM VOLLURE [Concomitant]
     Indication: SKIN WRINKLING

REACTIONS (2)
  - Injection site oedema [Recovered/Resolved]
  - Swelling face [Recovered/Resolved]

NARRATIVE: CASE EVENT DATE: 20190510
